FAERS Safety Report 12645706 (Version 1)
Quarter: 2016Q3

REPORT INFORMATION
  Report Type: Spontaneous
  Country: US (occurrence: US)
  Receive Date: 20160811
  Receipt Date: 20160811
  Transmission Date: 20161109
  Serious: No
  Sender: FDA-Public Use
  Company Number: US-ENDO PHARMACEUTICALS INC.-2015-002624

PATIENT
  Age: 60 Year
  Sex: Female
  Weight: 79.45 kg

DRUGS (1)
  1. PREDNISONE TABLETS 5MG [Suspect]
     Active Substance: PREDNISONE
     Indication: MULTIPLE SCLEROSIS
     Route: 048
     Dates: start: 20150717

REACTIONS (5)
  - Scar [Not Recovered/Not Resolved]
  - Unevaluable event [Recovering/Resolving]
  - Insomnia [Recovering/Resolving]
  - Product package associated injury [Recovered/Resolved]
  - Laceration [Recovered/Resolved]

NARRATIVE: CASE EVENT DATE: 201507
